FAERS Safety Report 11142243 (Version 1)
Quarter: 2015Q2

REPORT INFORMATION
  Report Type: Spontaneous
  Country: US (occurrence: US)
  Receive Date: 20150527
  Receipt Date: 20150527
  Transmission Date: 20150821
  Serious: No
  Sender: FDA-Public Use
  Company Number: US-TARO-2014TAR00022

PATIENT
  Age: 48 Year
  Sex: Female
  Weight: 87.75 kg

DRUGS (6)
  1. FLUCONAZOLE 100MGS [Suspect]
     Active Substance: FLUCONAZOLE
     Dosage: 150 MG, 1X/DAY
  2. NYSTATIN CREAM USP 100,000 UNITS/G [Suspect]
     Active Substance: NYSTATIN
     Dosage: UNK, 2X/DAY
     Route: 061
     Dates: start: 201405, end: 201405
  3. MAXAIR [Concomitant]
     Active Substance: PIRBUTEROL ACETATE
  4. FLUCONAZOLE 100MGS [Suspect]
     Active Substance: FLUCONAZOLE
     Indication: VULVOVAGINAL MYCOTIC INFECTION
     Dosage: 100 MG, 1X/DAY
     Route: 048
     Dates: start: 201405, end: 201405
  5. TERCONAZOLE VAGINAL CREAM 0.8% [Suspect]
     Active Substance: TERCONAZOLE
     Dosage: UNK, 1X/DAY
     Route: 061
     Dates: start: 201405, end: 201405
  6. ADVAIR HFA [Concomitant]
     Active Substance: FLUTICASONE PROPIONATE\SALMETEROL XINAFOATE

REACTIONS (1)
  - Drug ineffective [Unknown]

NARRATIVE: CASE EVENT DATE: 201405
